FAERS Safety Report 18089971 (Version 3)
Quarter: 2020Q3

REPORT INFORMATION
  Report Type: Report from Study
  Country: US (occurrence: US)
  Receive Date: 20200730
  Receipt Date: 20200824
  Transmission Date: 20201103
  Serious: Yes (Death, Hospitalization, Other)
  Sender: FDA-Public Use
  Company Number: US-BRISTOL-MYERS SQUIBB COMPANY-BMS-2020-059322

PATIENT
  Age: 66 Year
  Sex: Male
  Weight: 59.6 kg

DRUGS (2)
  1. APIXABAN [Suspect]
     Active Substance: APIXABAN
     Indication: DEEP VEIN THROMBOSIS
  2. APIXABAN [Suspect]
     Active Substance: APIXABAN
     Indication: PULMONARY EMBOLISM
     Dosage: 1 DOSAGE FORM (2.5 MG OR 5 MG), BID
     Route: 048
     Dates: start: 20190822, end: 20200730

REACTIONS (4)
  - Anaemia [Unknown]
  - Disease progression [Fatal]
  - Septic shock [Unknown]
  - Ascites [Unknown]

NARRATIVE: CASE EVENT DATE: 20200709
